FAERS Safety Report 24857170 (Version 1)
Quarter: 2025Q1

REPORT INFORMATION
  Report Type: Spontaneous
  Country: AU (occurrence: AU)
  Receive Date: 20250117
  Receipt Date: 20250117
  Transmission Date: 20250409
  Serious: Yes (Hospitalization, Other)
  Sender: BAXTER
  Company Number: AU-BAXTER-2025BAX010037

PATIENT
  Age: 72 Year
  Sex: Male

DRUGS (4)
  1. GLYCINE [Suspect]
     Active Substance: GLYCINE
     Indication: Irrigation therapy
     Route: 066
     Dates: start: 20250106, end: 20250106
  2. GLYCINE [Suspect]
     Active Substance: GLYCINE
     Indication: Bladder irrigation
  3. SODIUM CHLORIDE [Suspect]
     Active Substance: SODIUM CHLORIDE
     Indication: Irrigation therapy
     Route: 065
  4. SODIUM CHLORIDE [Suspect]
     Active Substance: SODIUM CHLORIDE
     Indication: Bladder irrigation

REACTIONS (5)
  - Hypertension [Recovered/Resolved]
  - Blood pressure systolic increased [Recovered/Resolved]
  - Wrong product administered [Unknown]
  - Product packaging confusion [Unknown]
  - Product label confusion [Unknown]

NARRATIVE: CASE EVENT DATE: 20250106
